FAERS Safety Report 4756547-1 (Version None)
Quarter: 2005Q3

REPORT INFORMATION
  Report Type: 
  Country: None (occurrence: None)
  Receive Date: 20050830
  Receipt Date: 20050729
  Transmission Date: 20060218
  Serious: No
  Sender: FDA-Public Use
  Company Number: US-GLAXOSMITHKLINE-A0568276A

PATIENT
  Age: 44 Year
  Sex: Female

DRUGS (4)
  1. WELLBUTRIN XL [Suspect]
     Indication: DEPRESSION
     Dosage: 300MG PER DAY
     Route: 048
  2. CLONAZEPAM [Concomitant]
  3. MINOCYCLINE [Concomitant]
  4. MULTI-VITAMIN [Concomitant]

REACTIONS (2)
  - ASTHENIA [None]
  - FATIGUE [None]
